FAERS Safety Report 7570714-3 (Version None)
Quarter: 2011Q2

REPORT INFORMATION
  Report Type: 
  Country: None (occurrence: None)
  Receive Date: 20110624
  Receipt Date: 20110614
  Transmission Date: 20111010
  Serious: Yes (Other)
  Sender: FDA-Public Use
  Company Number: VE-ELI_LILLY_AND_COMPANY-VE201106005430

PATIENT
  Age: 77 Year
  Sex: Male

DRUGS (1)
  1. EFFIENT [Suspect]
     Dosage: 10 MG, UNKNOWN
     Route: 065

REACTIONS (4)
  - ANGINA UNSTABLE [None]
  - NECK PAIN [None]
  - DRUG DOSE OMISSION [None]
  - THROMBOSIS IN DEVICE [None]
